FAERS Safety Report 7082030-7 (Version None)
Quarter: 2010Q4

REPORT INFORMATION
  Report Type: 
  Country: None (occurrence: None)
  Receive Date: 20101103
  Receipt Date: 20101025
  Transmission Date: 20110411
  Serious: Yes (Hospitalization, Other)
  Sender: FDA-Public Use
  Company Number: GB-ABBOTT-10P-167-0678512-00

PATIENT
  Sex: Female

DRUGS (2)
  1. HUMIRA [Suspect]
     Indication: RHEUMATOID ARTHRITIS
     Dates: start: 20090701, end: 20100301
  2. HUMIRA [Suspect]
     Dates: start: 20100601, end: 20100701

REACTIONS (4)
  - CONFUSIONAL STATE [None]
  - FOOT OPERATION [None]
  - HEADACHE [None]
  - VASCULITIS CEREBRAL [None]
